FAERS Safety Report 10780519 (Version 1)
Quarter: 2015Q1

REPORT INFORMATION
  Report Type: Other
  Country: US (occurrence: US)
  Receive Date: 20150210
  Receipt Date: 20150210
  Transmission Date: 20150721
  Serious: Yes (Death)
  Sender: FDA-Public Use
  Company Number: US-FRI-1000074382

PATIENT
  Age: 58 Year
  Sex: Male

DRUGS (8)
  1. GUAIFENESIN/PSEUDOEPHEDRINE ER [Suspect]
     Active Substance: GUAIFENESIN\PSEUDOEPHEDRINE HYDROCHLORIDE
  2. AMLODIPINE [Suspect]
     Active Substance: AMLODIPINE BESYLATE
  3. MORPHINE [Suspect]
     Active Substance: MORPHINE
  4. THEOPHYLLINE [Suspect]
     Active Substance: THEOPHYLLINE ANHYDROUS
  5. CITALOPRAM [Suspect]
     Active Substance: CITALOPRAM HYDROBROMIDE
  6. HYDROMORPHONE [Suspect]
     Active Substance: HYDROMORPHONE
  7. TRAMADOL [Suspect]
     Active Substance: TRAMADOL
  8. FLUPHENAZINE [Suspect]
     Active Substance: FLUPHENAZINE

REACTIONS (2)
  - Cardio-respiratory arrest [Fatal]
  - Completed suicide [Fatal]
